FAERS Safety Report 24676619 (Version 2)
Quarter: 2024Q4

REPORT INFORMATION
  Report Type: Spontaneous
  Country: BE (occurrence: BE)
  Receive Date: 20241128
  Receipt Date: 20241205
  Transmission Date: 20250115
  Serious: Yes (Other)
  Sender: JOHNSON AND JOHNSON
  Company Number: None

PATIENT
  Sex: Female

DRUGS (1)
  1. RISPERDAL [Suspect]
     Active Substance: RISPERIDONE
     Indication: Intentional self-injury
     Dosage: 100.00 MG
     Route: 048

REACTIONS (3)
  - Musculoskeletal stiffness [Unknown]
  - Tachycardia [Unknown]
  - Intentional overdose [Unknown]
